FAERS Safety Report 6384953-0 (Version None)
Quarter: 2009Q4

REPORT INFORMATION
  Report Type: 
  Country: None (occurrence: None)
  Receive Date: 20091002
  Receipt Date: 20090922
  Transmission Date: 20100525
  Serious: Yes (Hospitalization)
  Sender: FDA-Public Use
  Company Number: DE-JNJFOC-20091000090

PATIENT
  Age: 15 Year
  Sex: Female

DRUGS (2)
  1. DOXORUBICIN HCL [Suspect]
     Indication: BONE SARCOMA
     Route: 042
  2. PEG-INTERFERON ALPHA [Suspect]
     Indication: BONE SARCOMA
     Route: 065

REACTIONS (5)
  - C-REACTIVE PROTEIN INCREASED [None]
  - DEVICE RELATED INFECTION [None]
  - ENDOCARDITIS [None]
  - OFF LABEL USE [None]
  - PYREXIA [None]
